FAERS Safety Report 16544420 (Version 2)
Quarter: 2019Q3

REPORT INFORMATION
  Report Type: Spontaneous
  Country: US (occurrence: US)
  Receive Date: 20190709
  Receipt Date: 20190924
  Transmission Date: 20191004
  Serious: No
  Sender: FDA-Public Use
  Company Number: US-PFIZER INC-2019291870

PATIENT
  Age: 58 Year
  Sex: Female
  Weight: 92.99 kg

DRUGS (5)
  1. CLONAZEPAM. [Suspect]
     Active Substance: CLONAZEPAM
     Dosage: 1 MG, AS NEEDED
     Route: 048
     Dates: start: 2015
  2. LYRICA [Suspect]
     Active Substance: PREGABALIN
     Dosage: 75 MG, 4X/DAY
     Route: 048
  3. MORPHINE [Suspect]
     Active Substance: MORPHINE
     Dosage: 15 MG, 2X/DAY
     Route: 048
  4. LYRICA [Suspect]
     Active Substance: PREGABALIN
     Indication: NEURALGIA
     Dosage: 75 MG, 3X/DAY
     Route: 048
     Dates: start: 20190626
  5. HYDROCODONE [Suspect]
     Active Substance: HYDROCODONE
     Dosage: UNK, 2X/DAY(7.5/325 ONCE EVERY 12 HOURS)
     Route: 048
     Dates: start: 2017

REACTIONS (2)
  - Somnolence [Unknown]
  - Fatigue [Unknown]
